FAERS Safety Report 8679591 (Version 2)
Quarter: 2012Q4

REPORT INFORMATION
  Report Type: 
  Country: US (occurrence: US)
  Receive Date: 20120724
  Receipt Date: 20121018
  Transmission Date: 20130627
  Serious: Yes (Other)
  Sender: FDA-Public Use
  Company Number: US-009507513-2012SP032619

PATIENT
  Sex: Female

DRUGS (2)
  1. PEG-INTRON [Suspect]
     Indication: HEPATITIS C
     Dosage: UNK
     Dates: start: 20120425
  2. REBETOL [Suspect]
     Indication: HEPATITIS C
     Dosage: UNK
     Dates: start: 20120426

REACTIONS (11)
  - Thyroid function test abnormal [Unknown]
  - Hearing impaired [Unknown]
  - Tooth infection [Unknown]
  - Sensitivity of teeth [Unknown]
  - Breast pain [Unknown]
  - Pain [Unknown]
  - Vein pain [Unknown]
  - Myalgia [Unknown]
  - Appetite disorder [Unknown]
  - Influenza like illness [Unknown]
  - Nausea [Unknown]
